FAERS Safety Report 23816786 (Version 1)
Quarter: 2024Q2

REPORT INFORMATION
  Report Type: Report from Study
  Country: US (occurrence: US)
  Receive Date: 20240504
  Receipt Date: 20240504
  Transmission Date: 20240715
  Serious: Yes (Hospitalization, Other)
  Sender: FDA-Public Use
  Company Number: US-002147023-NVSC2024US031241

PATIENT
  Sex: Female

DRUGS (1)
  1. KESIMPTA [Suspect]
     Active Substance: OFATUMUMAB
     Indication: Multiple sclerosis
     Dosage: 20 MG, QMO
     Route: 058

REACTIONS (4)
  - Colitis ulcerative [Unknown]
  - Gastroenteritis viral [Unknown]
  - Vomiting [Unknown]
  - Diarrhoea [Unknown]
